FAERS Safety Report 18339006 (Version 1)
Quarter: 2020Q3

REPORT INFORMATION
  Report Type: Spontaneous
  Country: US (occurrence: US)
  Receive Date: 20200930
  Receipt Date: 20200930
  Transmission Date: 20201103
  Serious: Yes (Hospitalization)
  Sender: FDA-Public Use
  Company Number: None

PATIENT
  Age: 66 Year
  Sex: Male

DRUGS (2)
  1. CARVEDILOL (CARVEDILOL 25MG TAB) [Suspect]
     Active Substance: CARVEDILOL
     Route: 048
     Dates: start: 20130816, end: 20200508
  2. CLONIDINE (CLONIDINE 0.1MG/24HRS PATCH) [Suspect]
     Active Substance: CLONIDINE
     Indication: HYPERTENSION
     Route: 061
     Dates: start: 20191118, end: 20200508

REACTIONS (7)
  - Bradycardia [None]
  - Syncope [None]
  - Acute kidney injury [None]
  - Atrioventricular block complete [None]
  - Anuria [None]
  - Hypotension [None]
  - Drug level increased [None]

NARRATIVE: CASE EVENT DATE: 20191125
